FAERS Safety Report 4497741-7 (Version None)
Quarter: 2004Q4

REPORT INFORMATION
  Report Type: 
  Country: None (occurrence: None)
  Receive Date: 20041104
  Receipt Date: 20041022
  Transmission Date: 20050328
  Serious: Yes (Hospitalization)
  Sender: FDA-Public Use
  Company Number: HQWYE012325OCT04

PATIENT
  Age: 50 Year
  Sex: Male

DRUGS (9)
  1. RAPAMUNE [Suspect]
     Indication: IMMUNOSUPPRESSION
     Dosage: 1.5 MG AND 2 MG EVERY OTHER DAY
     Route: 048
     Dates: start: 20021211
  2. RAPAMUNE [Suspect]
     Indication: PROPHYLAXIS AGAINST TRANSPLANT REJECTION
     Dosage: 1.5 MG AND 2 MG EVERY OTHER DAY
     Route: 048
     Dates: start: 20021211
  3. MYCOPHENOLATE MOFETIL (MYCOPHENOLATE MOFETIL) [Concomitant]
  4. ASPIRIN [Concomitant]
  5. CLOPIDOGREL (CLOPIDOGREL) [Concomitant]
  6. AMLODIPINE (AMLODIPINE) [Concomitant]
  7. HYDROCHLOROTHIAZID (HYDROCHLOROTHIAZIDE) [Concomitant]
  8. ALLOPURINOL [Concomitant]
  9. ENALAPRIL (ENALAPRIL) [Concomitant]

REACTIONS (5)
  - DYSPNOEA [None]
  - FLUID OVERLOAD [None]
  - HYPERVOLAEMIA [None]
  - OEDEMA [None]
  - RENAL FAILURE [None]
